FAERS Safety Report 23471214 (Version 2)
Quarter: 2024Q1

REPORT INFORMATION
  Report Type: Spontaneous
  Country: US (occurrence: US)
  Receive Date: 20240202
  Receipt Date: 20240225
  Transmission Date: 20240409
  Serious: Yes (Hospitalization)
  Sender: FDA-Public Use
  Company Number: US-JNJFOC-20240181823

PATIENT
  Age: 43 Year
  Sex: Female
  Weight: 68.1 kg

DRUGS (21)
  1. UPTRAVI [Suspect]
     Active Substance: SELEXIPAG
     Indication: Pulmonary arterial hypertension
     Route: 048
  2. ORENITRAM [Suspect]
     Active Substance: TREPROSTINIL
     Indication: Pulmonary arterial hypertension
     Route: 048
     Dates: start: 20240112
  3. ORENITRAM [Suspect]
     Active Substance: TREPROSTINIL
     Route: 048
  4. ORENITRAM [Suspect]
     Active Substance: TREPROSTINIL
     Route: 048
  5. ORENITRAM [Suspect]
     Active Substance: TREPROSTINIL
     Dosage: 3 TABLETS OF 0.25 MG 0
     Route: 048
     Dates: start: 202401
  6. TYVASO [Suspect]
     Active Substance: TREPROSTINIL
     Indication: Pulmonary arterial hypertension
     Dosage: VIA TYVASO INHALATION DEVICE (TD-300/A),?30 UG (5 BREATHS), FOUR TIMES A DAY (QID)
     Route: 065
     Dates: start: 20231213, end: 202401
  7. TYVASO [Suspect]
     Active Substance: TREPROSTINIL
     Route: 065
  8. TYVASO [Suspect]
     Active Substance: TREPROSTINIL
     Dates: start: 20231213, end: 202401
  9. OPSUMIT [Suspect]
     Active Substance: MACITENTAN
     Indication: Pulmonary arterial hypertension
     Route: 048
  10. VITAMIN C [Concomitant]
     Active Substance: ASCORBIC ACID
  11. DOXYCYCLINE HYCLATE [Concomitant]
     Active Substance: DOXYCYCLINE HYCLATE
  12. COENZYME Q10 [Concomitant]
     Active Substance: DIETARY SUPPLEMENT\UBIDECARENONE
  13. MAGNESIUM OXIDE [Concomitant]
     Active Substance: MAGNESIUM OXIDE
  14. MENATETRENONE [Concomitant]
     Active Substance: MENATETRENONE
  15. BUDESONIDE\FORMOTEROL FUMARATE [Concomitant]
     Active Substance: BUDESONIDE\FORMOTEROL FUMARATE
  16. SPIRONOLACTONE [Concomitant]
     Active Substance: SPIRONOLACTONE
  17. OXYGEN [Concomitant]
     Active Substance: OXYGEN
  18. LEVOCARNITINE [Concomitant]
     Active Substance: LEVOCARNITINE
  19. VITAMIN D3 [Concomitant]
     Active Substance: CHOLECALCIFEROL
  20. FUROSEMIDE [Concomitant]
     Active Substance: FUROSEMIDE
  21. SODIUM BICARBONATE [Concomitant]
     Active Substance: SODIUM BICARBONATE

REACTIONS (13)
  - Dyspnoea [Unknown]
  - Memory impairment [Unknown]
  - Influenza [Unknown]
  - Diarrhoea [Unknown]
  - Insomnia [Unknown]
  - Gait disturbance [Unknown]
  - Fluid retention [Unknown]
  - Nocturnal dyspnoea [Unknown]
  - Weight fluctuation [Unknown]
  - Chromaturia [Unknown]
  - Dry eye [Unknown]
  - Ocular icterus [Unknown]
  - Product dose omission issue [Unknown]
